FAERS Safety Report 9207629 (Version 1)
Quarter: 2013Q1

REPORT INFORMATION
  Report Type: Spontaneous
  Country: US (occurrence: None)
  Receive Date: 20120719
  Receipt Date: 20120719
  Transmission Date: 20140127
  Serious: Yes (Hospitalization)
  Sender: FDA-Public Use
  Company Number: SP04346

PATIENT
  Age: 44 Year
  Sex: Female

DRUGS (8)
  1. XIFAXAN (TABLETS) [Suspect]
     Indication: ENCEPHALOPATHY
     Dosage: (550 MG., 2 IN 1 D)
     Route: 048
  2. SABRIL [Suspect]
     Indication: EPILEPSY
     Dosage: (250 MG, 2 IN 1 D)
     Route: 048
  3. SABRIL [Suspect]
     Indication: COMPLEX PARTIAL SEIZURES
     Dosage: (250 MG, 2 IN 1 D)
     Route: 048
  4. LYRICA [Concomitant]
  5. LACTULOSE [Concomitant]
  6. LAMICTAL [Concomitant]
  7. ATIVAN [Concomitant]
  8. KEPRRA [Concomitant]

REACTIONS (3)
  - Dyspnoea [None]
  - Chest pain [None]
  - Hypersensitivity [None]
